FAERS Safety Report 21999972 (Version 5)
Quarter: 2023Q1

REPORT INFORMATION
  Report Type: Spontaneous
  Country: US (occurrence: US)
  Receive Date: 20230216
  Receipt Date: 20230331
  Transmission Date: 20230417
  Serious: No
  Sender: FDA-Public Use
  Company Number: US-PFIZER INC-202300068998

PATIENT
  Age: 69 Year
  Sex: Female
  Weight: 56.689 kg

DRUGS (5)
  1. PAXLOVID [Interacting]
     Active Substance: NIRMATRELVIR\RITONAVIR
     Indication: COVID-19 treatment
     Dosage: UNK
     Dates: start: 20230209, end: 20230213
  2. ERLOTINIB HYDROCHLORIDE [Interacting]
     Active Substance: ERLOTINIB HYDROCHLORIDE
     Indication: Non-small cell lung cancer
     Dosage: 150 MG, 1X/DAY
     Dates: start: 202203
  3. LEVOTHYROXINE [Concomitant]
     Active Substance: LEVOTHYROXINE
     Dosage: 75 UG, 1X/DAY
     Dates: start: 2018
  4. AMITRIPTYLINE [Concomitant]
     Active Substance: AMITRIPTYLINE
     Dosage: 10 MG, 1X/DAY
     Dates: start: 2010
  5. XARELTO [Concomitant]
     Active Substance: RIVAROXABAN
     Indication: Pulmonary embolism
     Dosage: UNK
     Dates: start: 2022

REACTIONS (6)
  - Inflammation [Recovered/Resolved]
  - Irritability [Recovered/Resolved]
  - Tongue haemorrhage [Recovered/Resolved]
  - Gingival bleeding [Recovering/Resolving]
  - Mouth haemorrhage [Recovering/Resolving]
  - Drug interaction [Unknown]

NARRATIVE: CASE EVENT DATE: 20230210
